FAERS Safety Report 8215128-8 (Version None)
Quarter: 2012Q1

REPORT INFORMATION
  Report Type: 
  Country: None (occurrence: None)
  Receive Date: 20120316
  Receipt Date: 20120302
  Transmission Date: 20120608
  Serious: Yes (Life-Threatening)
  Sender: FDA-Public Use
  Company Number: FR-PFIZER INC-2012068370

PATIENT
  Age: 58 Year
  Sex: Female

DRUGS (7)
  1. ZANTAC [Suspect]
     Dosage: 50 MG, UNK
  2. PACLITAXEL [Suspect]
     Indication: BREAST CANCER
     Dosage: 132 MG
     Route: 042
     Dates: start: 20120126, end: 20120209
  3. ONDANSETRON [Concomitant]
     Dosage: 8 MG, UNK
     Route: 042
  4. DEXAMETHASONE [Concomitant]
     Dosage: 20 MG, UNK
     Route: 042
  5. METOCLOPRAMIDE [Concomitant]
     Dosage: 20 MG, UNK
     Route: 042
  6. POLARAMINE [Concomitant]
     Dosage: 5 MG, UNK
  7. FEMARA [Concomitant]

REACTIONS (4)
  - ANAPHYLACTIC SHOCK [None]
  - BRONCHOSPASM [None]
  - TACHYARRHYTHMIA [None]
  - ATRIAL FIBRILLATION [None]
